FAERS Safety Report 8605937-5 (Version None)
Quarter: 2012Q3

REPORT INFORMATION
  Report Type: 
  Country: None (occurrence: None)
  Receive Date: 20120820
  Receipt Date: 20120808
  Transmission Date: 20120928
  Serious: Yes (Hospitalization)
  Sender: FDA-Public Use
  Company Number: US-ROCHE-1088064

PATIENT
  Sex: Female

DRUGS (3)
  1. RIBAVIRIN [Suspect]
     Indication: HEPATITIS C
     Dates: start: 20120203
  2. INCIVEK [Suspect]
     Indication: HEPATITIS C
     Dates: start: 20120203
  3. PEGASYS [Suspect]
     Indication: HEPATITIS C
     Dates: start: 20120203

REACTIONS (9)
  - RENAL FAILURE [None]
  - ARTHROPATHY [None]
  - DYSPNOEA [None]
  - ALOPECIA [None]
  - STAPHYLOCOCCAL SKIN INFECTION [None]
  - COUGH [None]
  - VIRAL LOAD INCREASED [None]
  - ABSCESS [None]
  - CELLULITIS [None]
